FAERS Safety Report 18963592 (Version 10)
Quarter: 2021Q4

REPORT INFORMATION
  Report Type: Report from Study
  Country: IT (occurrence: IT)
  Receive Date: 20210303
  Receipt Date: 20211224
  Transmission Date: 20220303
  Serious: Yes (Death, Hospitalization, Other)
  Sender: FDA-Public Use
  Company Number: IT-VERASTEM-2020-00220

PATIENT

DRUGS (8)
  1. DUVELISIB [Suspect]
     Active Substance: DUVELISIB
     Indication: Peripheral T-cell lymphoma unspecified
     Dosage: 75 MG, BID
     Route: 048
     Dates: start: 20200916, end: 20200921
  2. LEVOTHYROXINE SODIUM [Concomitant]
     Active Substance: LEVOTHYROXINE SODIUM
     Indication: Hypothyroidism
     Dosage: 75 UG, DAILY
     Route: 048
     Dates: start: 1900
  3. RAMIPRIL [Concomitant]
     Active Substance: RAMIPRIL
     Indication: Hypertension
     Dosage: 5 MG, DAILY
     Route: 048
     Dates: start: 1900
  4. BISOPROLOL [Concomitant]
     Active Substance: BISOPROLOL
     Indication: Hypertension
     Dosage: 2.5 MG, DAILY
     Route: 048
     Dates: start: 1900
  5. ACYCLOVIR [Concomitant]
     Active Substance: ACYCLOVIR
     Indication: Antiviral prophylaxis
     Dosage: 400 MG, BID
     Route: 048
     Dates: start: 1900
  6. EZETIMIBE [Concomitant]
     Active Substance: EZETIMIBE
     Indication: Hypertriglyceridaemia
     Dosage: 10 MG, DAILY
     Route: 048
     Dates: start: 20200916
  7. BACTRIM [Concomitant]
     Active Substance: SULFAMETHOXAZOLE\TRIMETHOPRIM
     Indication: Prophylaxis
     Dosage: UNK, BID
     Route: 048
     Dates: start: 1900
  8. PANTOPRAZOLE [Concomitant]
     Active Substance: PANTOPRAZOLE
     Indication: Gastrointestinal disorder prophylaxis
     Dosage: 20 MG, DAILY
     Route: 048
     Dates: start: 20200916

REACTIONS (3)
  - Disease progression [Fatal]
  - Hepatitis [Not Recovered/Not Resolved]
  - Pneumonia cytomegaloviral [Not Recovered/Not Resolved]

NARRATIVE: CASE EVENT DATE: 20200921
